FAERS Safety Report 4445546-5 (Version None)
Quarter: 2004Q3

REPORT INFORMATION
  Report Type: 
  Country: None (occurrence: None)
  Receive Date: 20040908
  Receipt Date: 20040908
  Transmission Date: 20050211
  Serious: Yes (Hospitalization)
  Sender: FDA-Public Use
  Company Number: None

PATIENT
  Age: 22 Year
  Sex: Female

DRUGS (1)
  1. MORPHINE [Suspect]
     Dosage: 2MG, IV
     Route: 042

REACTIONS (3)
  - CHEST PAIN [None]
  - INFUSION SITE REACTION [None]
  - URTICARIA [None]
